FAERS Safety Report 15070148 (Version 29)
Quarter: 2022Q1

REPORT INFORMATION
  Report Type: Report from Study
  Country: CA (occurrence: CA)
  Receive Date: 20180626
  Receipt Date: 20220215
  Transmission Date: 20220423
  Serious: Yes (Other)
  Sender: FDA-Public Use
  Company Number: PHHY2010CA90000

PATIENT
  Age: 79 Year
  Sex: Male

DRUGS (6)
  1. SANDOSTATIN LAR DEPOT [Suspect]
     Active Substance: OCTREOTIDE ACETATE
     Indication: Pancreatic neuroendocrine tumour metastatic
     Dosage: 20 MG, QMO (EVERY 4 WEEKS)
     Route: 030
     Dates: start: 20101202
  2. SANDOSTATIN LAR DEPOT [Suspect]
     Active Substance: OCTREOTIDE ACETATE
  3. SANDOSTATIN LAR DEPOT [Suspect]
     Active Substance: OCTREOTIDE ACETATE
  4. DIOVAN [Suspect]
     Active Substance: VALSARTAN
     Indication: Product used for unknown indication
     Dosage: UNK
     Route: 048
  5. GABAPENTIN [Concomitant]
     Active Substance: GABAPENTIN
     Indication: Product used for unknown indication
     Dosage: 1 DF, TID
     Route: 065
  6. VENLAFAXINE [Concomitant]
     Active Substance: VENLAFAXINE HYDROCHLORIDE
     Indication: Product used for unknown indication
     Dosage: 4 DF, QD
     Route: 065

REACTIONS (18)
  - Blood pressure increased [Unknown]
  - Oropharyngeal pain [Unknown]
  - Joint injury [Unknown]
  - Mobility decreased [Unknown]
  - Back pain [Unknown]
  - Arthralgia [Unknown]
  - Movement disorder [Unknown]
  - Peripheral swelling [Unknown]
  - Gait inability [Unknown]
  - Stress [Unknown]
  - Weight decreased [Unknown]
  - Depressed mood [Unknown]
  - Insomnia [Unknown]
  - Pain in extremity [Recovering/Resolving]
  - Anxiety [Unknown]
  - Dry mouth [Unknown]
  - Blood pressure systolic increased [Unknown]
  - Hypoaesthesia [Unknown]

NARRATIVE: CASE EVENT DATE: 20160601
